FAERS Safety Report 16457708 (Version 1)
Quarter: 2019Q2

REPORT INFORMATION
  Report Type: Spontaneous
  Country: US (occurrence: US)
  Receive Date: 20190620
  Receipt Date: 20190620
  Transmission Date: 20190711
  Serious: No
  Sender: FDA-Public Use
  Company Number: US-PFIZER INC-2019212105

PATIENT
  Age: 61 Year
  Sex: Male
  Weight: 97.51 kg

DRUGS (2)
  1. LYRICA [Suspect]
     Active Substance: PREGABALIN
     Indication: BACK PAIN
     Dosage: 100 MG, 3X/DAY [1 (ONE) CAPSULE BY MOUTH THREE TIMES DAILY]
     Route: 048
  2. LYRICA [Suspect]
     Active Substance: PREGABALIN
     Indication: NEURALGIA
     Dosage: 200 MG, 2X/DAY [2 100MG CAPSULES BY MOUTH TWICE A DAY]
     Route: 048

REACTIONS (1)
  - Drug ineffective [Unknown]
